FAERS Safety Report 25812555 (Version 4)
Quarter: 2025Q4

REPORT INFORMATION
  Report Type: Report from Study
  Country: US (occurrence: US)
  Receive Date: 20250917
  Receipt Date: 20251015
  Transmission Date: 20260118
  Serious: Yes (Hospitalization)
  Sender: ALNYLAM PHARMACEUTICALS
  Company Number: US-ALNYLAM PHARMACEUTICALS, INC.-ALN-2025-005720

PATIENT
  Age: 17 Year

DRUGS (2)
  1. OXLUMO [Suspect]
     Active Substance: LUMASIRAN
     Indication: Product used for unknown indication
     Dosage: UNK
     Route: 065
  2. OXLUMO [Suspect]
     Active Substance: LUMASIRAN
     Dosage: 3 MILLIGRAM/KILOGRAM, Q3M (94.5 MG/0.5 ML VIAL) (MAINTENANCE DOSE)

REACTIONS (3)
  - Nephrolithiasis [Not Recovered/Not Resolved]
  - Weight increased [Unknown]
  - Liver disorder [Not Recovered/Not Resolved]
